FAERS Safety Report 18800481 (Version 1)
Quarter: 2021Q1

REPORT INFORMATION
  Report Type: Spontaneous
  Country: CA (occurrence: CA)
  Receive Date: 20210128
  Receipt Date: 20210128
  Transmission Date: 20210419
  Serious: Yes (Other)
  Sender: FDA-Public Use
  Company Number: CA-TEVA-2021-CA-1872940

PATIENT
  Age: 84 Year
  Sex: Female

DRUGS (1)
  1. HYDROCHLOROTHIAZIDE. [Suspect]
     Active Substance: HYDROCHLOROTHIAZIDE
     Route: 048

REACTIONS (6)
  - Headache [Unknown]
  - Nodal arrhythmia [Unknown]
  - Dizziness [Unknown]
  - Confusional state [Unknown]
  - Hyponatraemia [Unknown]
  - Sinus bradycardia [Unknown]
